FAERS Safety Report 7775015-6 (Version None)
Quarter: 2011Q3

REPORT INFORMATION
  Report Type: 
  Country: None (occurrence: None)
  Receive Date: 20110923
  Receipt Date: 20110921
  Transmission Date: 20111222
  Serious: Yes (Other)
  Sender: FDA-Public Use
  Company Number: US-PFIZER INC-2011225460

PATIENT

DRUGS (1)
  1. GEODON [Suspect]

REACTIONS (1)
  - LEUKAEMIA [None]
